FAERS Safety Report 5685361-8 (Version None)
Quarter: 2008Q1

REPORT INFORMATION
  Report Type: 
  Country: None (occurrence: None)
  Receive Date: 20080328
  Receipt Date: 20080318
  Transmission Date: 20080703
  Serious: Yes (Other)
  Sender: FDA-Public Use
  Company Number: GB-PFIZER INC-2008025307

PATIENT
  Sex: Female

DRUGS (5)
  1. GABAPENTIN [Suspect]
     Indication: NEURALGIA
  2. HYPERICUM EXTRACT [Interacting]
  3. ACETAMINOPHEN [Interacting]
  4. PETHIDINE [Interacting]
     Route: 031
  5. TRAMADOL HCL [Interacting]
     Indication: PAIN
     Route: 048

REACTIONS (4)
  - DRUG INTERACTION [None]
  - LOWER LIMB FRACTURE [None]
  - ROAD TRAFFIC ACCIDENT [None]
  - SEROTONIN SYNDROME [None]
